FAERS Safety Report 8573761-8 (Version None)
Quarter: 2012Q3

REPORT INFORMATION
  Report Type: 
  Country: None (occurrence: None)
  Receive Date: 20120806
  Receipt Date: 20120628
  Transmission Date: 20120928
  Serious: Yes (Hospitalization)
  Sender: FDA-Public Use
  Company Number: JP-GLAXOSMITHKLINE-B0811736A

PATIENT
  Sex: Female

DRUGS (1)
  1. ARIXTRA [Suspect]
     Indication: THROMBOSIS PROPHYLAXIS
     Dosage: 1IUAX PER DAY
     Route: 058
     Dates: start: 20120429, end: 20120503

REACTIONS (3)
  - HAEMATOMA [None]
  - HAEMORRHAGE [None]
  - PAIN [None]
